FAERS Safety Report 9381577 (Version 3)
Quarter: 2014Q2

REPORT INFORMATION
  Report Type: Spontaneous
  Country: US (occurrence: US)
  Receive Date: 20130703
  Receipt Date: 20140430
  Transmission Date: 20141212
  Serious: Yes (Other)
  Sender: FDA-Public Use
  Company Number: US-SANOFI-AVENTIS-2013SA066437

PATIENT
  Age: 71 Year
  Sex: Male

DRUGS (9)
  1. LANTUS [Suspect]
     Indication: TYPE 2 DIABETES MELLITUS
     Dosage: DOSE:20 UNIT(S)
     Route: 065
  2. HUMALOG [Concomitant]
     Dosage: DOSE:10 UNIT(S)
  3. FUROSEMIDE [Concomitant]
  4. WARFARIN [Concomitant]
     Indication: VASCULAR GRAFT
  5. GLIMEPIRIDE [Concomitant]
     Indication: BLOOD DISORDER
  6. GLIPIZIDE [Concomitant]
     Indication: ILL-DEFINED DISORDER
  7. LASIX [Concomitant]
     Indication: POLYURIA
  8. ALLOPURINOL [Concomitant]
     Indication: RENAL DISORDER
  9. CILOSTAZOL [Concomitant]
     Indication: ARTHROPATHY

REACTIONS (7)
  - Renal impairment [Unknown]
  - Peripheral vascular disorder [Unknown]
  - Insomnia [Unknown]
  - Neuropathy peripheral [Not Recovered/Not Resolved]
  - Dyspnoea [Unknown]
  - Weight increased [Unknown]
  - Drug dose omission [Unknown]
